FAERS Safety Report 23871787 (Version 5)
Quarter: 2025Q3

REPORT INFORMATION
  Report Type: Spontaneous
  Country: JP (occurrence: JP)
  Receive Date: 20240520
  Receipt Date: 20250717
  Transmission Date: 20251021
  Serious: Yes (Hospitalization, Other)
  Sender: NOVEN
  Company Number: JP-NOVEN PHARMACEUTICALS, INC.-2024-NOV-JP000390

PATIENT
  Age: 35 Year
  Sex: Female

DRUGS (1)
  1. ESTRADIOL [Suspect]
     Active Substance: ESTRADIOL
     Indication: Endometrial disorder
     Route: 062

REACTIONS (4)
  - Haemorrhagic infarction [Recovered/Resolved]
  - Cerebral venous sinus thrombosis [Recovered/Resolved]
  - Aphasia [Recovered/Resolved]
  - Seizure [Recovered/Resolved]
